FAERS Safety Report 10355101 (Version 2)
Quarter: 2014Q4

REPORT INFORMATION
  Report Type: Spontaneous
  Country: JP (occurrence: JP)
  Receive Date: 20140731
  Receipt Date: 20141020
  Transmission Date: 20150528
  Serious: Yes (Hospitalization, Other)
  Sender: FDA-Public Use
  Company Number: PHHY2011JP121190

PATIENT
  Age: 72 Year
  Sex: Female

DRUGS (4)
  1. AFINITOR [Suspect]
     Active Substance: EVEROLIMUS
     Indication: RENAL CELL CARCINOMA
     Dates: start: 20110704, end: 20110722
  2. PREDNISOLONE. [Concomitant]
     Active Substance: PREDNISOLONE
  3. AFINITOR [Suspect]
     Active Substance: EVEROLIMUS
     Dosage: 5 MG, UNK
     Dates: start: 20110920
  4. ZOMETA [Suspect]
     Active Substance: ZOLEDRONIC ACID

REACTIONS (4)
  - Tachycardia [Unknown]
  - Osteonecrosis of jaw [Unknown]
  - Blood pressure increased [Unknown]
  - Interstitial lung disease [Recovering/Resolving]
